FAERS Safety Report 5884629-X (Version None)
Quarter: 2008Q3

REPORT INFORMATION
  Report Type: 
  Country: None (occurrence: None)
  Receive Date: 20080911
  Receipt Date: 20080909
  Transmission Date: 20090109
  Serious: Yes (Death, Life-Threatening)
  Sender: FDA-Public Use
  Company Number: 2007SP010116

PATIENT
  Age: 32 Year
  Sex: Female
  Weight: 58 kg

DRUGS (34)
  1. TEMODAL [Suspect]
     Indication: GLIOBLASTOMA MULTIFORME
     Dosage: 75 MG/M2; QD; PO, 150 MG/M2; QD; PO, 200 MG/M2; QD; PO
     Route: 048
     Dates: start: 20061026, end: 20061107
  2. TEMODAL [Suspect]
     Indication: GLIOBLASTOMA MULTIFORME
     Dosage: 75 MG/M2; QD; PO, 150 MG/M2; QD; PO, 200 MG/M2; QD; PO
     Route: 048
     Dates: start: 20061110, end: 20061206
  3. TEMODAL [Suspect]
     Indication: GLIOBLASTOMA MULTIFORME
     Dosage: 75 MG/M2; QD; PO, 150 MG/M2; QD; PO, 200 MG/M2; QD; PO
     Route: 048
     Dates: start: 20070209, end: 20070213
  4. TEMODAL [Suspect]
     Indication: GLIOBLASTOMA MULTIFORME
     Dosage: 75 MG/M2; QD; PO, 150 MG/M2; QD; PO, 200 MG/M2; QD; PO
     Route: 048
     Dates: start: 20070309, end: 20070313
  5. TEMODAL [Suspect]
     Indication: GLIOBLASTOMA MULTIFORME
     Dosage: 75 MG/M2; QD; PO, 150 MG/M2; QD; PO, 200 MG/M2; QD; PO
     Route: 048
     Dates: start: 20070406, end: 20070410
  6. TEMODAL [Suspect]
     Indication: GLIOBLASTOMA MULTIFORME
     Dosage: 75 MG/M2; QD; PO, 150 MG/M2; QD; PO, 200 MG/M2; QD; PO
     Route: 048
     Dates: start: 20070511, end: 20070515
  7. TEMODAL [Suspect]
     Indication: GLIOBLASTOMA MULTIFORME
     Dosage: 75 MG/M2; QD; PO, 150 MG/M2; QD; PO, 200 MG/M2; QD; PO
     Route: 048
     Dates: start: 20070608, end: 20070612
  8. TEMODAL [Suspect]
     Indication: GLIOBLASTOMA MULTIFORME
     Dosage: 75 MG/M2; QD; PO, 150 MG/M2; QD; PO, 200 MG/M2; QD; PO
     Route: 048
     Dates: start: 20070706, end: 20070710
  9. DEPAKENE [Concomitant]
  10. GASTER D [Concomitant]
  11. MAGNESIUM OXIDE [Concomitant]
  12. MAGNESIUM OXIDE [Concomitant]
  13. NAUZELIN [Concomitant]
  14. NAUZELIN [Concomitant]
  15. EXCEGRAN [Concomitant]
  16. LANSOPRAZOLE [Concomitant]
  17. PREDONINE [Concomitant]
  18. GLYCEOL [Concomitant]
  19. DECADRON [Concomitant]
  20. BETAMETHASONE [Concomitant]
  21. NASEA [Concomitant]
  22. NASEA [Concomitant]
  23. NASEA [Concomitant]
  24. NASEA [Concomitant]
  25. NASEA [Concomitant]
  26. DEPAS [Concomitant]
  27. TEGRETOL [Concomitant]
  28. LIPITOR [Concomitant]
  29. TERNELIN [Concomitant]
  30. GLYCYRON [Concomitant]
  31. STRONGER NEO MINOPHAGEN C [Concomitant]
  32. GLYCEOL [Concomitant]
  33. DECADRON [Concomitant]
  34. FAMOTIDINE [Concomitant]

REACTIONS (10)
  - CANDIDIASIS [None]
  - CONDITION AGGRAVATED [None]
  - CULTURE STOOL POSITIVE [None]
  - DEHYDRATION [None]
  - DIARRHOEA [None]
  - DISEASE PROGRESSION [None]
  - ENTERITIS INFECTIOUS [None]
  - ENTEROBACTER INFECTION [None]
  - ENTEROCOCCAL INFECTION [None]
  - PLATELET COUNT DECREASED [None]
